FAERS Safety Report 6718616-6 (Version None)
Quarter: 2010Q2

REPORT INFORMATION
  Report Type: 
  Country: None (occurrence: None)
  Receive Date: 20100510
  Receipt Date: 20100506
  Transmission Date: 20101027
  Serious: Yes (Life-Threatening, Other)
  Sender: FDA-Public Use
  Company Number: US-MERCK-1004USA03579

PATIENT
  Age: 53 Year
  Sex: Female

DRUGS (8)
  1. IVEMEND [Suspect]
     Indication: PROPHYLAXIS OF NAUSEA AND VOMITING
     Route: 041
     Dates: start: 20100419, end: 20100419
  2. CYMBALTA [Concomitant]
     Route: 065
  3. COMBIVENT [Concomitant]
     Route: 065
  4. ADVAIR DISKUS 100/50 [Concomitant]
     Route: 065
  5. HYDROMORPHONE [Concomitant]
     Route: 065
  6. VITAMINS (UNSPECIFIED) [Concomitant]
     Route: 065
  7. CALCIUM (UNSPECIFIED) AND VITAMIN D (UNSPECIFIED) [Concomitant]
     Route: 065
  8. SENOKOT [Concomitant]
     Route: 065

REACTIONS (2)
  - BRONCHOSPASM [None]
  - DYSPNOEA [None]
